FAERS Safety Report 10052537 (Version 1)
Quarter: 2014Q2

REPORT INFORMATION
  Report Type: Spontaneous
  Country: FR (occurrence: FR)
  Receive Date: 20140402
  Receipt Date: 20140402
  Transmission Date: 20141212
  Serious: Yes (Hospitalization)
  Sender: FDA-Public Use
  Company Number: FR-B.I. PHARMACEUTICALS,INC./RIDGEFIELD-2014-BI-13283FF

PATIENT
  Age: 71 Year
  Sex: Female

DRUGS (7)
  1. SOTALEX [Concomitant]
     Route: 065
  2. LYRICA [Concomitant]
     Route: 065
  3. PRADAXA [Suspect]
     Indication: ATRIAL FIBRILLATION
     Dosage: 220 MG
     Route: 065
     Dates: end: 201402
  4. INEXIUM [Concomitant]
     Route: 065
  5. LASILIX [Concomitant]
     Route: 065
  6. SPECIAFOLDINE [Concomitant]
     Route: 065
  7. TARDYFERON [Concomitant]
     Route: 065

REACTIONS (4)
  - Arrhythmia [Unknown]
  - Renal failure acute [Recovered/Resolved]
  - Haemorrhage [Recovered/Resolved]
  - Overdose [Recovered/Resolved]
